FAERS Safety Report 4925248-9 (Version None)
Quarter: 2006Q1

REPORT INFORMATION
  Report Type: 
  Country: None (occurrence: None)
  Receive Date: 20060222
  Receipt Date: 20060222
  Transmission Date: 20060701
  Serious: Yes (Hospitalization)
  Sender: FDA-Public Use
  Company Number: None

PATIENT
  Sex: Female
  Weight: 51.2565 kg

DRUGS (2)
  1. GADOLINIUM [Suspect]
     Indication: MULTIPLE SCLEROSIS
     Dosage: 11 ML ONE TIME IV
     Route: 042
     Dates: start: 20051208, end: 20051208
  2. GADOLINIUM [Suspect]
     Indication: NUCLEAR MAGNETIC RESONANCE IMAGING
     Dosage: 11 ML ONE TIME IV
     Route: 042
     Dates: start: 20051208, end: 20051208

REACTIONS (7)
  - CONVULSION [None]
  - DEPRESSED LEVEL OF CONSCIOUSNESS [None]
  - DRUG HYPERSENSITIVITY [None]
  - EYE MOVEMENT DISORDER [None]
  - HYPOAESTHESIA [None]
  - POSTICTAL STATE [None]
  - TREMOR [None]
